FAERS Safety Report 8125273-3 (Version None)
Quarter: 2012Q1

REPORT INFORMATION
  Report Type: 
  Country: None (occurrence: None)
  Receive Date: 20120209
  Receipt Date: 20120202
  Transmission Date: 20120608
  Serious: Yes (Life-Threatening)
  Sender: FDA-Public Use
  Company Number: DE-ELI_LILLY_AND_COMPANY-DE201202000955

PATIENT
  Age: 50 Year
  Sex: Male
  Weight: 54 kg

DRUGS (6)
  1. EFFIENT [Suspect]
     Dosage: 10 MG, UNK
  2. ASPIRIN [Concomitant]
  3. BETA BLOCKING AGENTS [Concomitant]
  4. EFFIENT [Suspect]
     Dosage: 5 MG, UNK
     Dates: start: 20120131, end: 20120131
  5. EFFIENT [Suspect]
     Indication: THROMBOSIS IN DEVICE
     Dosage: 60 MG, SINGLE LOADING DOSE
     Dates: start: 20120131, end: 20120131
  6. ACE INHIBITORS [Concomitant]

REACTIONS (4)
  - PLATELET AGGREGATION ABNORMAL [None]
  - OFF LABEL USE [None]
  - OVERDOSE [None]
  - DRUG INEFFECTIVE [None]
